FAERS Safety Report 8180433-0 (Version None)
Quarter: 2012Q1

REPORT INFORMATION
  Report Type: 
  Country: None (occurrence: None)
  Receive Date: 20120302
  Receipt Date: 20120224
  Transmission Date: 20120608
  Serious: Yes (Hospitalization, Other)
  Sender: FDA-Public Use
  Company Number: US-PFIZER INC-2011271930

PATIENT
  Sex: Female

DRUGS (16)
  1. BYSTOLIC [Concomitant]
     Dosage: 10 MG, 1X/DAY
  2. ACETYLSALICYLIC ACID [Concomitant]
     Dosage: 81 MG, 1X/DAY
  3. HYDRALAZINE [Concomitant]
     Dosage: 10 MG, DAILY
  4. LISINOPRIL [Concomitant]
     Dosage: 40 MG, DAILY
  5. SUTENT [Suspect]
     Indication: METASTATIC RENAL CELL CARCINOMA
     Dosage: 37.5 MG, 1X/DAY
     Route: 048
     Dates: start: 20110929, end: 20111012
  6. FLUDROCORTISONE [Concomitant]
     Dosage: UNK
  7. BACTRIM DS [Concomitant]
     Dosage: TWICE A DAY FOR TWO DAYS
     Route: 048
  8. MAGNESIUM [Concomitant]
     Dosage: 2X/DAY ONE TABLET
  9. FLORINEF [Concomitant]
     Dosage: 0.1 MG, 1X/DAY
  10. OMEPRAZOLE [Concomitant]
     Dosage: 20 MG, 1X/DAY
  11. SUTENT [Suspect]
     Indication: BREAST CANCER
     Dosage: 50 MG, 1X/DAY
     Route: 048
     Dates: start: 20110628
  12. CLINDAMYCIN [Concomitant]
     Dosage: 150 MG, 3X/DAY FOR THREE DAYS.
     Route: 048
  13. HYDROCORTISONE [Concomitant]
     Dosage: 20 MG IN THE A.M. AND 10 MG IN THE EVENING.
  14. NITROGLYCERIN [Concomitant]
     Dosage: 0.4 MG, ON IN A.M. AND OFF AT H.S.
  15. CORTEF [Concomitant]
     Dosage: 10 MG, 1X/DAY
  16. AMLODIPINE [Concomitant]
     Dosage: 10 MG, DAILY

REACTIONS (13)
  - CARDIAC ARREST [None]
  - HYPOKALAEMIA [None]
  - ELECTROCARDIOGRAM QT PROLONGED [None]
  - PANCYTOPENIA [None]
  - HYPOMAGNESAEMIA [None]
  - VENTRICULAR TACHYCARDIA [None]
  - PNEUMONIA ASPIRATION [None]
  - CARDIAC FAILURE [None]
  - HYPERTENSION [None]
  - TUMOUR HAEMORRHAGE [None]
  - OEDEMA [None]
  - POLLAKIURIA [None]
  - LOSS OF CONSCIOUSNESS [None]
